FAERS Safety Report 7257608-8 (Version None)
Quarter: 2011Q1

REPORT INFORMATION
  Report Type: 
  Country: None (occurrence: None)
  Receive Date: 20110129
  Receipt Date: 20100805
  Transmission Date: 20110831
  Serious: No
  Sender: FDA-Public Use
  Company Number: US-ABBOTT-10P-163-0649470-00

PATIENT
  Sex: Female
  Weight: 56.75 kg

DRUGS (3)
  1. IMURAN [Concomitant]
     Indication: FIBROMYALGIA
  2. HUMIRA [Suspect]
     Route: 058
     Dates: start: 20100601
  3. HUMIRA [Suspect]
     Indication: RHEUMATOID ARTHRITIS
     Dates: start: 20080601, end: 20100201

REACTIONS (7)
  - INSOMNIA [None]
  - WRONG TECHNIQUE IN DRUG USAGE PROCESS [None]
  - DRUG DOSE OMISSION [None]
  - RHEUMATOID ARTHRITIS [None]
  - INJECTION SITE EXTRAVASATION [None]
  - FATIGUE [None]
  - INJECTION SITE HAEMORRHAGE [None]
